FAERS Safety Report 26059743 (Version 2)
Quarter: 2025Q4

REPORT INFORMATION
  Report Type: Spontaneous
  Country: RU (occurrence: RU)
  Receive Date: 20251118
  Receipt Date: 20251124
  Transmission Date: 20260117
  Serious: Yes (Other)
  Sender: ROCHE
  Company Number: RU-ROCHE-10000435838

PATIENT
  Age: 29 Year
  Sex: Female

DRUGS (2)
  1. OCRELIZUMAB [Suspect]
     Active Substance: OCRELIZUMAB
     Indication: Secondary progressive multiple sclerosis
     Dosage: SECOND INFUSION OF 300 MG (15 DAYS AFTER THE FIRST ADMINISTRATION)
     Route: 065
  2. OCRELIZUMAB [Suspect]
     Active Substance: OCRELIZUMAB
     Dosage: SECOND INFUSION OF 300 MG (15 DAYS AFTER THE FIRST ADMINISTRATION)
     Route: 065

REACTIONS (3)
  - Seizure [Unknown]
  - Loss of consciousness [Unknown]
  - Epilepsy [Unknown]
